FAERS Safety Report 6450949-3 (Version None)
Quarter: 2009Q4

REPORT INFORMATION
  Report Type: 
  Country: None (occurrence: None)
  Receive Date: 20091123
  Receipt Date: 20091117
  Transmission Date: 20100525
  Serious: Yes (Hospitalization)
  Sender: FDA-Public Use
  Company Number: A0818177A

PATIENT
  Age: 76 Year
  Sex: Female
  Weight: 78.2 kg

DRUGS (1)
  1. AVANDIA [Suspect]
     Indication: DIABETES MELLITUS
     Dosage: 4MG TWICE PER DAY
     Route: 048
     Dates: start: 19990101, end: 20080101

REACTIONS (4)
  - DYSPNOEA [None]
  - FLUID RETENTION [None]
  - LETHARGY [None]
  - MYOCARDIAL INFARCTION [None]
